FAERS Safety Report 7765817-4 (Version None)
Quarter: 2011Q3

REPORT INFORMATION
  Report Type: 
  Country: None (occurrence: None)
  Receive Date: 20110921
  Receipt Date: 20110912
  Transmission Date: 20111222
  Serious: Yes (Hospitalization)
  Sender: FDA-Public Use
  Company Number: US-JNJFOC-20101006696

PATIENT
  Sex: Female
  Weight: 32.5 kg

DRUGS (12)
  1. VSL3 [Concomitant]
  2. LODINE [Concomitant]
  3. INFLIXIMAB, RECOMBINANT [Suspect]
     Route: 042
     Dates: start: 20090501
  4. MESALAMINE [Concomitant]
  5. GROWTH HORMONE [Concomitant]
  6. MIRALAX [Concomitant]
  7. NITROFURANTOIN [Concomitant]
  8. VIACTIV CALCIUM CHEWS [Concomitant]
  9. VICODIN [Concomitant]
  10. LUPRON [Concomitant]
  11. INFLIXIMAB, RECOMBINANT [Suspect]
     Indication: INFLAMMATORY BOWEL DISEASE
     Route: 042
     Dates: start: 20100218
  12. GABAPENTIN [Concomitant]

REACTIONS (1)
  - CELLULITIS [None]
